FAERS Safety Report 24546258 (Version 3)
Quarter: 2025Q2

REPORT INFORMATION
  Report Type: Report from Study
  Country: US (occurrence: US)
  Receive Date: 20241024
  Receipt Date: 20250606
  Transmission Date: 20250716
  Serious: Yes (Other)
  Sender: TAKEDA
  Company Number: US-TAKEDA-2024TUS106252

PATIENT
  Age: 80 Year
  Sex: Male

DRUGS (2)
  1. VONICOG ALFA [Suspect]
     Active Substance: VONICOG ALFA
     Indication: Product used for unknown indication
  2. VONICOG ALFA [Suspect]
     Active Substance: VONICOG ALFA

REACTIONS (3)
  - Gingival bleeding [Recovered/Resolved]
  - Oropharyngeal pain [Unknown]
  - Laryngitis [Unknown]

NARRATIVE: CASE EVENT DATE: 20250530
